FAERS Safety Report 12423140 (Version 1)
Quarter: 2016Q2

REPORT INFORMATION
  Report Type: Spontaneous
  Country: US (occurrence: US)
  Receive Date: 20160601
  Receipt Date: 20160601
  Transmission Date: 20160815
  Serious: No
  Sender: FDA-Public Use
  Company Number: PHHY2016US074935

PATIENT
  Sex: Female

DRUGS (2)
  1. SALAGEN [Suspect]
     Active Substance: PILOCARPINE HYDROCHLORIDE
     Dosage: 05 MG, UNK
     Route: 065
     Dates: start: 201604
  2. SALAGEN [Suspect]
     Active Substance: PILOCARPINE HYDROCHLORIDE
     Indication: PRODUCT USED FOR UNKNOWN INDICATION
     Dosage: 20 MG, UNK
     Route: 065
     Dates: start: 2014, end: 2014

REACTIONS (2)
  - Drug ineffective [Unknown]
  - Palpitations [Unknown]
